FAERS Safety Report 7019495-2 (Version None)
Quarter: 2010Q3

REPORT INFORMATION
  Report Type: 
  Country: None (occurrence: None)
  Receive Date: 20100928
  Receipt Date: 20100916
  Transmission Date: 20110219
  Serious: No
  Sender: FDA-Public Use
  Company Number: US-BIOGENIDEC-2010BI032768

PATIENT
  Age: 58 Year
  Sex: Female

DRUGS (2)
  1. TYSABRI [Suspect]
     Indication: MULTIPLE SCLEROSIS
     Route: 042
     Dates: start: 20090928
  2. AVONEX [Concomitant]
     Indication: MULTIPLE SCLEROSIS
     Route: 030
     Dates: start: 20010401

REACTIONS (7)
  - CONCUSSION [None]
  - FATIGUE [None]
  - HEAD INJURY [None]
  - HEADACHE [None]
  - MUSCLE TIGHTNESS [None]
  - MUSCULOSKELETAL DISORDER [None]
  - VOMITING [None]
